FAERS Safety Report 10847500 (Version 1)
Quarter: 2015Q1

REPORT INFORMATION
  Report Type: Spontaneous
  Country: IN (occurrence: IN)
  Receive Date: 20150220
  Receipt Date: 20150220
  Transmission Date: 20150721
  Serious: Yes (Death)
  Sender: FDA-Public Use
  Company Number: IN-009507513-1502IND008462

PATIENT
  Age: 76 Year
  Sex: Female

DRUGS (2)
  1. MIXTARD HUMAN 70/30 [Concomitant]
     Active Substance: INSULIN HUMAN
     Dosage: 16 DF, BID (16 UNIT, TWICE A DAY)
  2. JANUMET [Suspect]
     Active Substance: METFORMIN HYDROCHLORIDE\SITAGLIPTIN PHOSPHATE
     Indication: DIABETES MELLITUS
     Dosage: STRENGHT: 50/500 (UNITS NOT
     Route: 048

REACTIONS (2)
  - Feeling abnormal [Unknown]
  - Death [Fatal]
